FAERS Safety Report 17060938 (Version 2)
Quarter: 2023Q2

REPORT INFORMATION
  Report Type: Spontaneous
  Country: CA (occurrence: CA)
  Receive Date: 20191121
  Receipt Date: 20230522
  Transmission Date: 20230722
  Serious: Yes (Other)
  Sender: FDA-Public Use
  Company Number: CA-NOVARTISPH-NVSC2019CA042405

PATIENT

DRUGS (1)
  1. TIMOLOL [Suspect]
     Active Substance: TIMOLOL
     Indication: Intraocular pressure increased
     Dosage: UNK, BID
     Route: 047

REACTIONS (6)
  - Raynaud^s phenomenon [Recovering/Resolving]
  - Concomitant disease aggravated [Recovering/Resolving]
  - Peripheral circulatory failure [Unknown]
  - Dizziness [Unknown]
  - Anxiety [Unknown]
  - Mood swings [Unknown]
